FAERS Safety Report 23717086 (Version 1)
Quarter: 2024Q2

REPORT INFORMATION
  Report Type: Spontaneous
  Country: US (occurrence: US)
  Receive Date: 20240408
  Receipt Date: 20240408
  Transmission Date: 20240716
  Serious: No
  Sender: FDA-Public Use
  Company Number: US-NOVAST LABORATORIES INC.-2023NOV000245

PATIENT

DRUGS (1)
  1. LARIN 24 FE [Suspect]
     Active Substance: ETHINYL ESTRADIOL\NORETHINDRONE ACETATE
     Indication: Ovarian cyst
     Dosage: UNK
     Route: 048
     Dates: start: 2022

REACTIONS (3)
  - Heavy menstrual bleeding [Unknown]
  - Dysmenorrhoea [Unknown]
  - Product use in unapproved indication [Unknown]
